FAERS Safety Report 4562399-5 (Version None)
Quarter: 2005Q1

REPORT INFORMATION
  Report Type: 
  Country: None (occurrence: None)
  Receive Date: 20050127
  Receipt Date: 20040609
  Transmission Date: 20050727
  Serious: No
  Sender: FDA-Public Use
  Company Number: US-BRISTOL-MYERS SQUIBB COMPANY-12610135

PATIENT
  Age: 21 Month
  Sex: Male
  Weight: 13 kg

DRUGS (3)
  1. KENALOG-10 [Suspect]
     Indication: GASTROENTERITIS VIRAL
     Dosage: IN RIGHT THIGH
     Route: 030
     Dates: start: 20040225
  2. KENALOG-10 [Suspect]
     Indication: RETCHING
     Dosage: IN RIGHT THIGH
     Route: 030
     Dates: start: 20040225
  3. ROCEPHIN [Concomitant]
     Dosage: INJECTION
     Route: 051
     Dates: start: 20040225

REACTIONS (2)
  - INJECTION SITE DISCOLOURATION [None]
  - MUSCLE ATROPHY [None]
